FAERS Safety Report 8461041-0 (Version None)
Quarter: 2012Q2

REPORT INFORMATION
  Report Type: 
  Country: None (occurrence: None)
  Receive Date: 20120625
  Receipt Date: 20120614
  Transmission Date: 20120825
  Serious: No
  Sender: FDA-Public Use
  Company Number: US-BIOGENIDEC-2012BI021558

PATIENT
  Sex: Female

DRUGS (2)
  1. TYSABRI [Suspect]
     Indication: MULTIPLE SCLEROSIS
     Route: 042
     Dates: start: 20071105, end: 20101021
  2. TYSABRI [Suspect]
     Route: 042
     Dates: start: 20120508

REACTIONS (9)
  - MUSCULOSKELETAL DISORDER [None]
  - GAIT DISTURBANCE [None]
  - MOBILITY DECREASED [None]
  - PAIN IN EXTREMITY [None]
  - FEAR [None]
  - ARTHRITIS [None]
  - FEELING ABNORMAL [None]
  - VERTIGO [None]
  - WEIGHT INCREASED [None]
